FAERS Safety Report 4282245-7 (Version None)
Quarter: 2004Q1

REPORT INFORMATION
  Report Type: 
  Country: None (occurrence: None)
  Receive Date: 20040130
  Receipt Date: 20040129
  Transmission Date: 20041129
  Serious: Yes (Other)
  Sender: FDA-Public Use
  Company Number: DE-GLAXOSMITHKLINE-D0042997A

PATIENT
  Age: 66 Year
  Sex: Female

DRUGS (1)
  1. QUILONUM RETARD [Suspect]
     Route: 048

REACTIONS (4)
  - ACCIDENTAL OVERDOSE [None]
  - DEHYDRATION [None]
  - RENAL FAILURE [None]
  - SPEECH DISORDER [None]
